FAERS Safety Report 8330343-0 (Version None)
Quarter: 2012Q2

REPORT INFORMATION
  Report Type: 
  Country: None (occurrence: None)
  Receive Date: 20120502
  Receipt Date: 20120427
  Transmission Date: 20120825
  Serious: Yes (Other)
  Sender: FDA-Public Use
  Company Number: US-FRI-1000024535

PATIENT
  Sex: Male
  Weight: 68 kg

DRUGS (4)
  1. LEXAPRO [Suspect]
     Dates: start: 20111004
  2. ALPRAZOLAM [Concomitant]
  3. LEXAPRO [Suspect]
     Indication: DEPRESSION
     Dosage: 10 MG
     Dates: start: 20100101, end: 20120410
  4. LEXAPRO [Suspect]

REACTIONS (1)
  - OESOPHAGEAL ACHALASIA [None]
